FAERS Safety Report 19349780 (Version 2)
Quarter: 2021Q3

REPORT INFORMATION
  Report Type: Spontaneous
  Country: MT (occurrence: MT)
  Receive Date: 20210531
  Receipt Date: 20210708
  Transmission Date: 20211014
  Serious: Yes (Life-Threatening)
  Sender: FDA-Public Use
  Company Number: MT-TEVA-2021-MT-1916263

PATIENT
  Age: 56 Year
  Sex: Female
  Weight: 83.5 kg

DRUGS (6)
  1. LEOXANTIL [Concomitant]
     Indication: DEPRESSION
     Dosage: 6 MILLIGRAM DAILY;
  2. CLINDAMYCIN. [Concomitant]
     Active Substance: CLINDAMYCIN
     Indication: DENTAL CARIES
  3. VAXZEVRIA [Suspect]
     Active Substance: AZD-1222
     Indication: COVID-19 IMMUNISATION
     Dosage: FIRST DOSE
     Dates: start: 20210421
  4. ANAFRANIL 25 MG COMPRIME ENROBE [Concomitant]
     Indication: DEPRESSION
     Dosage: 25 MILLIGRAM DAILY;
  5. SIMVASTATIN. [Suspect]
     Active Substance: SIMVASTATIN
     Indication: HYPERCHOLESTEROLAEMIA
     Dosage: 20 MILLIGRAM DAILY; 20MG NIGHT
     Route: 065
  6. LEVOTHYROXINE. [Concomitant]
     Active Substance: LEVOTHYROXINE
     Indication: HYPOTHYROIDISM
     Dosage: 50MCG MON + THURS, 100 MCG REST OF DAYS

REACTIONS (2)
  - Pulmonary embolism [Not Recovered/Not Resolved]
  - Thrombocytopenia [Not Recovered/Not Resolved]

NARRATIVE: CASE EVENT DATE: 20210508
